FAERS Safety Report 24339172 (Version 2)
Quarter: 2024Q4

REPORT INFORMATION
  Report Type: Spontaneous
  Country: US (occurrence: US)
  Receive Date: 20240919
  Receipt Date: 20241003
  Transmission Date: 20250115
  Serious: No
  Sender: AMGEN
  Company Number: US-AMGEN-USASP2024186889

PATIENT
  Sex: Male

DRUGS (2)
  1. PROCYSBI [Suspect]
     Active Substance: CYSTEAMINE BITARTRATE
     Indication: Amino acid metabolism disorder
     Dosage: 600 MILLIGRAM, BID (EIGHT 75 MG CAPSULES)
     Route: 048
  2. PROCYSBI [Suspect]
     Active Substance: CYSTEAMINE BITARTRATE
     Indication: Cystinosis
     Dosage: 600 MILLIGRAM, BID (EIGHT 75 MG CAPSULES)
     Route: 048

REACTIONS (5)
  - Nausea [Unknown]
  - Illness [Unknown]
  - Vomiting [Unknown]
  - Decreased appetite [Unknown]
  - Product dose omission issue [Unknown]
